FAERS Safety Report 14938628 (Version 1)
Quarter: 2018Q2

REPORT INFORMATION
  Report Type: Report from Study
  Country: LB (occurrence: LB)
  Receive Date: 20180525
  Receipt Date: 20180525
  Transmission Date: 20180711
  Serious: Yes (Death, Hospitalization)
  Sender: FDA-Public Use
  Company Number: LB-JNJFOC-20180528538

PATIENT
  Sex: Male

DRUGS (1)
  1. IMBRUVICA [Suspect]
     Active Substance: IBRUTINIB
     Indication: MANTLE CELL LYMPHOMA
     Route: 048
     Dates: start: 201803

REACTIONS (5)
  - Adverse event [Fatal]
  - Off label use [Unknown]
  - Incorrect dose administered [Unknown]
  - Seizure [Unknown]
  - Mantle cell lymphoma [Fatal]

NARRATIVE: CASE EVENT DATE: 2018
